FAERS Safety Report 6440742-X (Version None)
Quarter: 2009Q4

REPORT INFORMATION
  Report Type: 
  Country: None (occurrence: None)
  Receive Date: 20091116
  Receipt Date: 20091015
  Transmission Date: 20100525
  Serious: No
  Sender: FDA-Public Use
  Company Number: US-BAYER-200714095BWH

PATIENT
  Age: 68 Year
  Sex: Male

DRUGS (13)
  1. LEVITRA [Suspect]
     Indication: ERECTILE DYSFUNCTION
     Dosage: TOTAL DAILY DOSE: 20 MG  UNIT DOSE: 20 MG
     Route: 048
     Dates: start: 20061001
  2. LEVITRA [Suspect]
     Dosage: UNIT DOSE: 20 MG
     Route: 048
     Dates: start: 20070101
  3. LEVITRA [Suspect]
     Dosage: TOTAL DAILY DOSE: 10 MG  UNIT DOSE: 10 MG
     Route: 048
     Dates: start: 20051001, end: 20061001
  4. ALCOHOL [Concomitant]
  5. ZETIA [Concomitant]
     Dosage: TOTAL DAILY DOSE: 10 MG
  6. LIPITOR [Concomitant]
     Indication: BLOOD CHOLESTEROL INCREASED
     Dosage: TOTAL DAILY DOSE: 20 MG  UNIT DOSE: 20 MG
     Dates: start: 20040101
  7. DIOVAN [Concomitant]
     Indication: HYPERTENSION
     Dosage: TOTAL DAILY DOSE: 80 MG
     Dates: start: 20060101
  8. ZYRTEC [Concomitant]
     Dosage: TOTAL DAILY DOSE: 10 MG
  9. VITAMIN TAB [Concomitant]
  10. FLAX SEED OIL [Concomitant]
     Dosage: TOTAL DAILY DOSE: 2000 MG  UNIT DOSE: 1000 MG
     Dates: start: 20070101
  11. FISH OIL [Concomitant]
     Dosage: TOTAL DAILY DOSE: 2000 MG  UNIT DOSE: 1000 MG
     Dates: start: 20070101
  12. NIACIN [Concomitant]
     Dosage: TOTAL DAILY DOSE: 1000 MG  UNIT DOSE: 500 MG
     Dates: start: 20070101
  13. ALLOPURINOL [Concomitant]
     Indication: GOUT
     Dosage: TOTAL DAILY DOSE: 200 MG
     Dates: start: 20070101

REACTIONS (5)
  - CHEST DISCOMFORT [None]
  - CHEST PAIN [None]
  - NERVOUSNESS [None]
  - RESTLESSNESS [None]
  - RHINORRHOEA [None]
